FAERS Safety Report 6713144-6 (Version None)
Quarter: 2010Q2

REPORT INFORMATION
  Report Type: 
  Country: None (occurrence: None)
  Receive Date: 20100506
  Receipt Date: 20100422
  Transmission Date: 20101027
  Serious: Yes (Hospitalization, Other)
  Sender: FDA-Public Use
  Company Number: PHHY2010US25146

PATIENT
  Sex: Female
  Weight: 84 kg

DRUGS (1)
  1. EXJADE [Suspect]
     Indication: SICKLE CELL ANAEMIA
     Dosage: 500 MG, BID
     Route: 048
     Dates: start: 20090901

REACTIONS (2)
  - MULTI-ORGAN FAILURE [None]
  - RENAL FAILURE CHRONIC [None]
